FAERS Safety Report 19113844 (Version 1)
Quarter: 2021Q2

REPORT INFORMATION
  Report Type: Spontaneous
  Country: US (occurrence: US)
  Receive Date: 20210409
  Receipt Date: 20210409
  Transmission Date: 20210717
  Serious: Yes (Hospitalization)
  Sender: FDA-Public Use
  Company Number: None

PATIENT
  Sex: Female

DRUGS (1)
  1. LORBRENA [Suspect]
     Active Substance: LORLATINIB
     Indication: PRODUCT USED FOR UNKNOWN INDICATION
     Route: 048
     Dates: start: 20210316

REACTIONS (8)
  - Confusional state [None]
  - Fatigue [None]
  - Weight increased [None]
  - Dyspnoea [None]
  - Fluid retention [None]
  - Nerve injury [None]
  - Arthralgia [None]
  - Arrhythmia [None]
